FAERS Safety Report 9252063 (Version 1)
Quarter: 2013Q2

REPORT INFORMATION
  Report Type: Spontaneous
  Country: US (occurrence: US)
  Receive Date: 20130424
  Receipt Date: 20130424
  Transmission Date: 20140414
  Serious: Yes (Other)
  Sender: FDA-Public Use
  Company Number: PHHY2013US038250

PATIENT
  Age: 46 Year
  Sex: Female

DRUGS (5)
  1. CEFAZOLIN [Suspect]
     Indication: RASH
     Dosage: 1 G, UNK
     Route: 012
  2. DOXYCYCLINE [Suspect]
     Dosage: 100 MG, UNK
     Route: 048
  3. CLINDAMYCIN [Suspect]
     Route: 061
  4. CEFALEXIN [Suspect]
     Indication: RASH
     Dosage: 500 MG, Q6H
     Route: 048
  5. BENZOYL PEROXIDE [Suspect]

REACTIONS (7)
  - Serratia infection [Recovering/Resolving]
  - Papule [Recovering/Resolving]
  - Rash erythematous [Recovering/Resolving]
  - Rash pustular [Recovering/Resolving]
  - Acne [Recovering/Resolving]
  - Drug ineffective [Unknown]
  - Drug resistance [Unknown]
